FAERS Safety Report 8139853-2 (Version None)
Quarter: 2012Q1

REPORT INFORMATION
  Report Type: 
  Country: None (occurrence: None)
  Receive Date: 20120215
  Receipt Date: 20120213
  Transmission Date: 20120608
  Serious: Yes (Life-Threatening, Other)
  Sender: FDA-Public Use
  Company Number: DE-B.I. PHARMACEUTICALS,INC./RIDGEFIELD-2011-DE-06544DE

PATIENT
  Sex: Female
  Weight: 71 kg

DRUGS (2)
  1. PRADAXA [Suspect]
     Indication: ATRIAL FIBRILLATION
     Dosage: 300 MG
  2. FLECAINID [Concomitant]
     Indication: ATRIAL FIBRILLATION
     Dosage: 200 MG

REACTIONS (2)
  - HEPATIC FAILURE [None]
  - HEPATITIS TOXIC [None]
